FAERS Safety Report 9785299 (Version 1)
Quarter: 2013Q4

REPORT INFORMATION
  Report Type: Spontaneous
  Country: US (occurrence: None)
  Receive Date: 20131224
  Receipt Date: 20131224
  Transmission Date: 20140711
  Serious: Yes (Other)
  Sender: FDA-Public Use
  Company Number: KAD201312-001713

PATIENT
  Sex: 0

DRUGS (3)
  1. RIBAVIRIN (RIBAVIRIN) [Suspect]
     Indication: HEPATITIS C
  2. PEGINTERFERON (PEGINTERFERON) [Suspect]
     Indication: HEPATITIS C
     Route: 058
  3. TELAPREVIR (TELAPREVIR) [Suspect]
     Indication: HEPATITIS C
     Route: 048

REACTIONS (8)
  - Virologic failure [None]
  - Hypersensitivity [None]
  - Stevens-Johnson syndrome [None]
  - Anaemia [None]
  - Septic shock [None]
  - Neutropenia [None]
  - Psychotic disorder [None]
  - No therapeutic response [None]
